FAERS Safety Report 16764866 (Version 1)
Quarter: 2019Q3

REPORT INFORMATION
  Report Type: Report from Study
  Country: NO (occurrence: NO)
  Receive Date: 20190903
  Receipt Date: 20190903
  Transmission Date: 20191005
  Serious: Yes (Other)
  Sender: FDA-Public Use
  Company Number: NO-ROCHE-2399797

PATIENT
  Sex: Female

DRUGS (3)
  1. NITROUS OXIDE;OXYGEN [Concomitant]
     Active Substance: NITROUS OXIDE\OXYGEN
     Indication: ANAESTHESIA
     Dosage: 6+2 LITERS
     Route: 065
  2. DIAZEPAM. [Suspect]
     Active Substance: DIAZEPAM
     Indication: ANAESTHESIA
     Route: 042
  3. ATROPINE. [Concomitant]
     Active Substance: ATROPINE
     Indication: PREMEDICATION
     Route: 042

REACTIONS (2)
  - Apnoea [Unknown]
  - Maternal exposure during pregnancy [Unknown]
